FAERS Safety Report 21476728 (Version 1)
Quarter: 2022Q4

REPORT INFORMATION
  Report Type: Spontaneous
  Country: CA (occurrence: CA)
  Receive Date: 20221019
  Receipt Date: 20221019
  Transmission Date: 20230112
  Serious: Yes (Hospitalization, Other)
  Sender: FDA-Public Use
  Company Number: CA-BAUSCH-BL-2022-023699

PATIENT
  Sex: Male
  Weight: 85 kg

DRUGS (24)
  1. DIAZEPAM [Interacting]
     Active Substance: DIAZEPAM
     Indication: Seizure
     Route: 065
  2. DIAZEPAM [Interacting]
     Active Substance: DIAZEPAM
     Route: 065
  3. CARBAMAZEPINE [Interacting]
     Active Substance: CARBAMAZEPINE
     Indication: Seizure
     Route: 065
  4. CARBAMAZEPINE [Interacting]
     Active Substance: CARBAMAZEPINE
     Indication: Product used for unknown indication
     Route: 065
  5. NORDAZEPAM [Interacting]
     Active Substance: NORDAZEPAM
     Indication: Product used for unknown indication
     Route: 065
  6. OLANZAPINE [Interacting]
     Active Substance: OLANZAPINE
     Indication: Product used for unknown indication
     Route: 065
  7. OLANZAPINE [Interacting]
     Active Substance: OLANZAPINE
     Route: 065
  8. OLANZAPINE [Interacting]
     Active Substance: OLANZAPINE
     Route: 065
  9. OLANZAPINE [Interacting]
     Active Substance: OLANZAPINE
     Route: 065
  10. PHENYTOIN [Interacting]
     Active Substance: PHENYTOIN
     Indication: Seizure
     Route: 065
  11. PHENYTOIN [Interacting]
     Active Substance: PHENYTOIN
     Indication: Product used for unknown indication
     Route: 065
  12. QUETIAPINE FUMARATE [Interacting]
     Active Substance: QUETIAPINE FUMARATE
     Indication: Psychotic disorder
     Route: 065
  13. QUETIAPINE FUMARATE [Interacting]
     Active Substance: QUETIAPINE FUMARATE
     Indication: Product used for unknown indication
     Route: 065
  14. VALPROIC ACID [Interacting]
     Active Substance: VALPROIC ACID
     Indication: Seizure
     Route: 065
  15. VALPROIC ACID [Interacting]
     Active Substance: VALPROIC ACID
     Indication: Schizophrenia
     Route: 065
  16. DIAZEPAM [Interacting]
     Active Substance: DIAZEPAM
     Indication: Seizure
     Route: 030
  17. DIAZEPAM [Interacting]
     Active Substance: DIAZEPAM
     Indication: Product used for unknown indication
     Route: 048
  18. GEMFIBROZIL [Concomitant]
     Active Substance: GEMFIBROZIL
     Indication: Hypertension
  19. PROPRANOLOL [Concomitant]
     Active Substance: PROPRANOLOL HYDROCHLORIDE
     Indication: Hypertension
  20. PROPRANOLOL [Concomitant]
     Active Substance: PROPRANOLOL HYDROCHLORIDE
     Indication: Product used for unknown indication
  21. PROPRANOLOL [Concomitant]
     Active Substance: PROPRANOLOL HYDROCHLORIDE
  22. PROPRANOLOL [Concomitant]
     Active Substance: PROPRANOLOL HYDROCHLORIDE
  23. PROPRANOLOL [Concomitant]
     Active Substance: PROPRANOLOL HYDROCHLORIDE
  24. TEMAZEPAM [Concomitant]
     Active Substance: TEMAZEPAM
     Indication: Seizure

REACTIONS (2)
  - Drug interaction [Unknown]
  - Drug level below therapeutic [Unknown]
